FAERS Safety Report 25645172 (Version 2)
Quarter: 2025Q3

REPORT INFORMATION
  Report Type: Spontaneous
  Country: US (occurrence: US)
  Receive Date: 20250805
  Receipt Date: 20250901
  Transmission Date: 20251020
  Serious: No
  Sender: TORRENT PHARMA INC.
  Company Number: US-TORRENT-00014453

PATIENT
  Age: 54 Year
  Sex: Female
  Weight: 58 kg

DRUGS (2)
  1. DAPSONE [Suspect]
     Active Substance: DAPSONE
     Indication: Product used for unknown indication
     Route: 061
     Dates: start: 20250715
  2. DIFFERIN GEL [Concomitant]
     Active Substance: ADAPALENE
     Indication: Product used for unknown indication
     Route: 065

REACTIONS (6)
  - Skin irritation [Unknown]
  - Acne [Unknown]
  - Instillation site foreign body sensation [Unknown]
  - Feeling abnormal [Unknown]
  - Product physical consistency issue [Unknown]
  - Skin abrasion [Unknown]
